FAERS Safety Report 20360852 (Version 2)
Quarter: 2022Q1

REPORT INFORMATION
  Report Type: Spontaneous
  Country: CH (occurrence: CH)
  Receive Date: 20220121
  Receipt Date: 20220310
  Transmission Date: 20220423
  Serious: Yes (Other)
  Sender: FDA-Public Use
  Company Number: CH-ABBVIE-22K-151-4241944-00

PATIENT
  Age: 42 Year
  Sex: Male
  Weight: 97 kg

DRUGS (3)
  1. RINVOQ [Suspect]
     Active Substance: UPADACITINIB
     Indication: Rheumatoid arthritis
     Route: 048
     Dates: start: 202107, end: 202201
  2. WELLBUTRIN [Concomitant]
     Active Substance: BUPROPION HYDROCHLORIDE
     Indication: Depression
     Dosage: 1
     Dates: start: 2017
  3. PANTOPRAZOLE SODIUM [Concomitant]
     Active Substance: PANTOPRAZOLE SODIUM
     Indication: Gastrooesophageal reflux disease
     Dosage: 1
     Dates: start: 2015

REACTIONS (1)
  - Testicular germ cell tumour mixed [Recovered/Resolved]

NARRATIVE: CASE EVENT DATE: 20220101
